FAERS Safety Report 7720082-9 (Version None)
Quarter: 2011Q3

REPORT INFORMATION
  Report Type: 
  Country: None (occurrence: None)
  Receive Date: 20110824
  Receipt Date: 20110809
  Transmission Date: 20111222
  Serious: Yes (Death, Hospitalization)
  Sender: FDA-Public Use
  Company Number: 2011PV000045

PATIENT
  Age: 70 Year
  Sex: Male

DRUGS (1)
  1. DEPOCYT [Suspect]
     Indication: CENTRAL NERVOUS SYSTEM LYMPHOMA
     Dosage: 50 MG, QM, INTH
     Route: 039
     Dates: start: 20100901, end: 20110201

REACTIONS (17)
  - HEADACHE [None]
  - MUSCLE SPASMS [None]
  - BACTERIAL TEST POSITIVE [None]
  - ORAL CANDIDIASIS [None]
  - CEREBRAL ATROPHY [None]
  - DELIRIUM [None]
  - BEDRIDDEN [None]
  - EPSTEIN-BARR VIRUS TEST POSITIVE [None]
  - OXYGEN SATURATION DECREASED [None]
  - URINARY INCONTINENCE [None]
  - MOTOR DYSFUNCTION [None]
  - TOXIC ENCEPHALOPATHY [None]
  - CONFUSIONAL STATE [None]
  - BLOOD PRESSURE DIASTOLIC INCREASED [None]
  - SOMNOLENCE [None]
  - FAECAL INCONTINENCE [None]
  - SENSORY LOSS [None]
